FAERS Safety Report 7210197-6 (Version None)
Quarter: 2011Q1

REPORT INFORMATION
  Report Type: 
  Country: None (occurrence: None)
  Receive Date: 20110105
  Receipt Date: 20101230
  Transmission Date: 20110831
  Serious: Yes (Hospitalization, Other)
  Sender: FDA-Public Use
  Company Number: DE-BRISTOL-MYERS SQUIBB COMPANY-15256381

PATIENT
  Age: 28 Year
  Sex: Female
  Weight: 54 kg

DRUGS (6)
  1. NORVIR [Suspect]
     Indication: HIV INFECTION
     Dosage: ALSO MAY-2004 UNTIL OCT-2006.
     Route: 048
     Dates: start: 20061001
  2. SUSTIVA [Suspect]
     Indication: HIV INFECTION
     Dosage: 200 MG TAB, 3 IN EVENING; FROM 11AUG2003, 600 MG TAB, ONE TAB IN EVENINING
     Dates: start: 20030101
  3. REYATAZ [Suspect]
     Indication: HIV INFECTION
     Dosage: 1 DF:300/
     Route: 048
     Dates: start: 20071016
  4. TRUVADA [Suspect]
     Indication: HIV INFECTION
     Dosage: 1DF: 300/200MG 1TAB/CAPS
     Route: 048
     Dates: start: 20071016
  5. CEFUROXIME [Concomitant]
     Indication: URINARY TRACT INFECTION
  6. CELESTAN [Concomitant]
     Indication: MATERNAL THERAPY TO ENHANCE FOETAL LUNG MATURITY

REACTIONS (6)
  - PREMATURE LABOUR [None]
  - TWIN PREGNANCY [None]
  - URINARY TRACT INFECTION [None]
  - CAESAREAN SECTION [None]
  - PREMATURE RUPTURE OF MEMBRANES [None]
  - DRUG EXPOSURE DURING PREGNANCY [None]
